FAERS Safety Report 4558824-6 (Version None)
Quarter: 2005Q1

REPORT INFORMATION
  Report Type: 
  Country: None (occurrence: None)
  Receive Date: 20050121
  Receipt Date: 20050112
  Transmission Date: 20050727
  Serious: Yes (Death)
  Sender: FDA-Public Use
  Company Number: NL-GLAXOSMITHKLINE-B0364846A

PATIENT
  Age: 47 Year
  Sex: Female

DRUGS (1)
  1. PAROXETINE HYDROCHLORIDE [Suspect]
     Indication: DEPRESSION
     Dosage: 10MG PER DAY
     Route: 065
     Dates: start: 20041118, end: 20041124

REACTIONS (1)
  - COMPLETED SUICIDE [None]
